FAERS Safety Report 18953138 (Version 1)
Quarter: 2021Q1

REPORT INFORMATION
  Report Type: Spontaneous
  Country: US (occurrence: US)
  Receive Date: 20210301
  Receipt Date: 20210301
  Transmission Date: 20210420
  Serious: No
  Sender: FDA-Public Use
  Company Number: US-TAKEDA-2021TUS012708

PATIENT
  Sex: Female
  Weight: 63.49 kg

DRUGS (20)
  1. PREDNISONE. [Concomitant]
     Active Substance: PREDNISONE
  2. ACETAMINOPHEN. [Concomitant]
     Active Substance: ACETAMINOPHEN
  3. PAROXETINE MESYLATE [Concomitant]
     Active Substance: PAROXETINE MESYLATE
  4. MINIVELLE [Concomitant]
     Active Substance: ESTRADIOL
  5. BENADRYL [ACRIVASTINE] [Concomitant]
     Active Substance: ACRIVASTINE
  6. DIPHENHYDRAMINE. [Concomitant]
     Active Substance: DIPHENHYDRAMINE
  7. TUMS ULTRA [Concomitant]
     Active Substance: CALCIUM CARBONATE
  8. CYANOCOBALAMIN. [Concomitant]
     Active Substance: CYANOCOBALAMIN
  9. BACLOFEN. [Concomitant]
     Active Substance: BACLOFEN
  10. TYLENOL [Concomitant]
     Active Substance: ACETAMINOPHEN
  11. PROGESTERONE. [Concomitant]
     Active Substance: PROGESTERONE
  12. GAMMAGARD LIQUID [Suspect]
     Active Substance: HUMAN IMMUNOGLOBULIN G
     Indication: POLYNEUROPATHY
     Dosage: 40 GRAM, Q4WEEKS
     Route: 042
     Dates: start: 20190626
  13. SODIUM CHLORIDE. [Concomitant]
     Active Substance: SODIUM CHLORIDE
  14. EPINEPHRINE. [Concomitant]
     Active Substance: EPINEPHRINE
  15. MULTIVITAMINS [VITAMINS NOS] [Concomitant]
     Active Substance: VITAMINS
  16. GABAPENTIN. [Concomitant]
     Active Substance: GABAPENTIN
  17. DEXILANT [Concomitant]
     Active Substance: DEXLANSOPRAZOLE
  18. VITAMIN D2 [Concomitant]
     Active Substance: ERGOCALCIFEROL
  19. LYSINE [Concomitant]
     Active Substance: LYSINE
  20. PROPRANOLOL [Concomitant]
     Active Substance: PROPRANOLOL HYDROCHLORIDE

REACTIONS (1)
  - Rash [Unknown]
